FAERS Safety Report 6630178-0 (Version None)
Quarter: 2010Q1

REPORT INFORMATION
  Report Type: 
  Country: None (occurrence: None)
  Receive Date: 20100311
  Receipt Date: 20100304
  Transmission Date: 20100710
  Serious: Yes (Other)
  Sender: FDA-Public Use
  Company Number: US-JNJFOC-20100301877

PATIENT
  Age: 36 Year
  Sex: Male
  Weight: 138.35 kg

DRUGS (1)
  1. TOPAMAX [Suspect]
     Indication: WEIGHT LOSS DIET
     Route: 048

REACTIONS (1)
  - MACULAR DEGENERATION [None]
